FAERS Safety Report 23544172 (Version 1)
Quarter: 2024Q1

REPORT INFORMATION
  Report Type: Spontaneous
  Country: US (occurrence: None)
  Receive Date: 20240216
  Receipt Date: 20240216
  Transmission Date: 20240409
  Serious: Yes (Disabling)
  Sender: FDA-Public Use
  Company Number: None

PATIENT
  Age: 51 Year
  Sex: Female
  Weight: 133.65 kg

DRUGS (1)
  1. OZEMPIC [Suspect]
     Active Substance: SEMAGLUTIDE
     Indication: Blood glucose increased
     Dosage: OTHER FREQUENCY : WEEKLY;?OTHER ROUTE : INJECTION PEN;?
     Route: 050
     Dates: start: 20230309

REACTIONS (3)
  - Cholelithiasis [None]
  - Pancreatic disorder [None]
  - Injury [None]
